FAERS Safety Report 4752612-3 (Version None)
Quarter: 2005Q3

REPORT INFORMATION
  Report Type: 
  Country: None (occurrence: None)
  Receive Date: 20050823
  Receipt Date: 20050809
  Transmission Date: 20060218
  Serious: Yes (Other)
  Sender: FDA-Public Use
  Company Number: EWC050845343

PATIENT
  Age: 68 Year
  Sex: Female
  Weight: 50 kg

DRUGS (11)
  1. FORTEO [Suspect]
     Indication: OSTEOPOROSIS
     Dates: start: 20041124, end: 20050809
  2. PLACEBO [Suspect]
     Indication: OSTEOPOROSIS
     Dates: start: 20041124, end: 20050809
  3. METHOTREXATE [Concomitant]
  4. PANACOD [Concomitant]
  5. NITROGLICERINA (GLYCERYL TRINITRATE) [Concomitant]
  6. DIUREX [Concomitant]
  7. ISMOX (ISOSORBIDE MONONITRATE) [Concomitant]
  8. PANADOL ACTIFAST (PARACETAMOL) [Concomitant]
  9. EMCONCOR (BISOPROLOL) [Concomitant]
  10. ZOCOR [Concomitant]
  11. PREDNISOLONE [Concomitant]

REACTIONS (2)
  - APHTHOUS STOMATITIS [None]
  - EPIDERMOLYSIS [None]
